FAERS Safety Report 6692327-8 (Version None)
Quarter: 2010Q2

REPORT INFORMATION
  Report Type: 
  Country: None (occurrence: None)
  Receive Date: 20100419
  Receipt Date: 20100402
  Transmission Date: 20101027
  Serious: Yes (Death, Hospitalization)
  Sender: FDA-Public Use
  Company Number: KV201000117

PATIENT
  Age: 60 Year
  Sex: Male
  Weight: 80.3 kg

DRUGS (32)
  1. MORPHINE SULFATE [Suspect]
     Indication: PAIN
     Dosage: 30 MG, BID, ORAL, 15 MG, BID, ORAL, 30 MG, BID, ORAL, 45 MG, TID, ORAL, 60 MG, TID, ORAL
     Route: 048
     Dates: start: 20080703, end: 20080801
  2. MORPHINE SULFATE [Suspect]
     Indication: PAIN
     Dosage: 30 MG, BID, ORAL, 15 MG, BID, ORAL, 30 MG, BID, ORAL, 45 MG, TID, ORAL, 60 MG, TID, ORAL
     Route: 048
     Dates: start: 20080801, end: 20080918
  3. MORPHINE SULFATE [Suspect]
     Indication: PAIN
     Dosage: 30 MG, BID, ORAL, 15 MG, BID, ORAL, 30 MG, BID, ORAL, 45 MG, TID, ORAL, 60 MG, TID, ORAL
     Route: 048
     Dates: start: 20080918, end: 20081002
  4. MORPHINE SULFATE [Suspect]
     Indication: PAIN
     Dosage: 30 MG, BID, ORAL, 15 MG, BID, ORAL, 30 MG, BID, ORAL, 45 MG, TID, ORAL, 60 MG, TID, ORAL
     Route: 048
     Dates: start: 20081002, end: 20081104
  5. MORPHINE SULFATE [Suspect]
     Indication: PAIN
     Dosage: 30 MG, BID, ORAL, 15 MG, BID, ORAL, 30 MG, BID, ORAL, 45 MG, TID, ORAL, 60 MG, TID, ORAL
     Route: 048
     Dates: start: 20081104, end: 20090803
  6. BENADRYL HYDROCHLORIDE (DIPHENHYDRAMINE HYDROCHLORIDE) [Concomitant]
  7. ACETAMINOPHEN [Concomitant]
  8. LASIX [Concomitant]
  9. HUMULIN N [Concomitant]
  10. CENTRUM SILVER (ASCORBIC ACID, CALCIUM, MINERALS NOS, RETINOL, TOCOPHE [Concomitant]
  11. PAROXETINE HCL [Concomitant]
  12. TEMAZEPAM [Concomitant]
  13. FLOVENT HFA (FLUTICASONE PROPIONATE) [Concomitant]
  14. COMBIVENT (IPRATROPIUM BROMIDE, SALBUTAMOL) [Concomitant]
  15. HYDROCODONE W/APAP (HYDROCODONE, PARACETAMOL) [Concomitant]
  16. XANAX [Concomitant]
  17. ETOPOSIDE [Concomitant]
  18. CARBOPLATIN [Concomitant]
  19. NEULASTA [Concomitant]
  20. LORAZEPAM [Concomitant]
  21. MAGNESIUM CITRATE (MAGNESIUM CITRATE) [Concomitant]
  22. SENOKOT (SENNA ALEXANDRINA) [Concomitant]
  23. LACTULOSE [Concomitant]
  24. ACYCLOVIR [Concomitant]
  25. NOVOLIN (INSULIN) [Concomitant]
  26. NOVOLOG [Concomitant]
  27. OXYCODONE AND ACETAMINOPHEN [Concomitant]
  28. VITAMIN B12 (HYDROXOCOBALAMIN) [Concomitant]
  29. PROTONIX [Concomitant]
  30. METFORMIN HCL [Concomitant]
  31. DEXAMETHASONE [Concomitant]
  32. MORPHINE SULFATE INJ [Concomitant]

REACTIONS (33)
  - ABDOMINAL DISTENSION [None]
  - ABDOMINAL PAIN [None]
  - ADRENAL MASS [None]
  - ANAEMIA [None]
  - ASTHENIA [None]
  - BACK PAIN [None]
  - CHEST PAIN [None]
  - CHILLS [None]
  - CONSTIPATION [None]
  - DEAFNESS [None]
  - DECREASED APPETITE [None]
  - DIABETES MELLITUS [None]
  - DIABETES MELLITUS INADEQUATE CONTROL [None]
  - DIARRHOEA [None]
  - FAILURE TO THRIVE [None]
  - GAIT DISTURBANCE [None]
  - HEADACHE [None]
  - HYPOPHAGIA [None]
  - LETHARGY [None]
  - METASTASES TO ADRENALS [None]
  - METASTASES TO CENTRAL NERVOUS SYSTEM [None]
  - MUCOSAL INFLAMMATION [None]
  - MUSCULAR WEAKNESS [None]
  - MUSCULOSKELETAL PAIN [None]
  - OEDEMA PERIPHERAL [None]
  - PAIN IN EXTREMITY [None]
  - PERICARDIAL EFFUSION [None]
  - PLEURAL EFFUSION [None]
  - PULMONARY CONGESTION [None]
  - PYREXIA [None]
  - RENAL FAILURE [None]
  - SMALL CELL LUNG CANCER STAGE UNSPECIFIED [None]
  - STOMATITIS [None]
